FAERS Safety Report 7352566-X (Version None)
Quarter: 2011Q1

REPORT INFORMATION
  Report Type: 
  Country: None (occurrence: None)
  Receive Date: 20110315
  Receipt Date: 20110307
  Transmission Date: 20110831
  Serious: Yes (Death)
  Sender: FDA-Public Use
  Company Number: JP-BAYER-2011-020347

PATIENT
  Sex: Male

DRUGS (4)
  1. VANCOMYCIN [Concomitant]
     Indication: SEPSIS
     Dosage: 0.5 G, QD
     Route: 042
     Dates: start: 20110107, end: 20110113
  2. CIPROFLOXACIN BETAIN [Suspect]
  3. METILON [Concomitant]
     Dosage: 250 MG, QD
     Route: 042
     Dates: start: 20110110, end: 20110114
  4. OMEGACIN [Concomitant]
     Indication: SEPSIS
     Dosage: 300 MG, QD
     Route: 042
     Dates: start: 20110107, end: 20110113

REACTIONS (1)
  - SEPSIS [None]
